FAERS Safety Report 13023580 (Version 1)
Quarter: 2016Q4

REPORT INFORMATION
  Report Type: Spontaneous
  Country: US (occurrence: US)
  Receive Date: 20161213
  Receipt Date: 20161213
  Transmission Date: 20170207
  Serious: Yes (Hospitalization, Other)
  Sender: FDA-Public Use
  Company Number: US-DEPOMED, INC.-US-2016DEP012923

PATIENT

DRUGS (1)
  1. GRALISE [Suspect]
     Active Substance: GABAPENTIN
     Indication: TREMOR
     Dosage: UNK, WITH EVENING MEAL
     Route: 048
     Dates: start: 20161129, end: 201612

REACTIONS (6)
  - Euphoric mood [Unknown]
  - Activities of daily living impaired [Unknown]
  - Somnolence [Unknown]
  - Unevaluable event [Unknown]
  - Dizziness [Unknown]
  - Product use issue [Recovered/Resolved]

NARRATIVE: CASE EVENT DATE: 20161129
